FAERS Safety Report 6729772-8 (Version None)
Quarter: 2010Q2

REPORT INFORMATION
  Report Type: 
  Country: None (occurrence: None)
  Receive Date: 20100513
  Receipt Date: 20100421
  Transmission Date: 20101027
  Serious: Yes (Other)
  Sender: FDA-Public Use
  Company Number: 2010SP022710

PATIENT
  Age: 37 Year
  Sex: Female
  Weight: 63 kg

DRUGS (1)
  1. NUVARING [Suspect]
     Indication: CONTRACEPTION
     Dates: start: 20091101, end: 20100401

REACTIONS (5)
  - CROHN'S DISEASE [None]
  - DISEASE RECURRENCE [None]
  - GASTROINTESTINAL INFECTION [None]
  - PROCTOCOLITIS [None]
  - SUDDEN HEARING LOSS [None]
